FAERS Safety Report 5603043-5 (Version None)
Quarter: 2008Q1

REPORT INFORMATION
  Report Type: 
  Country: None (occurrence: None)
  Receive Date: 20080125
  Receipt Date: 20080114
  Transmission Date: 20080703
  Serious: Yes (Hospitalization)
  Sender: FDA-Public Use
  Company Number: NL-PFIZER INC-2007098933

PATIENT
  Sex: Male
  Weight: 84 kg

DRUGS (3)
  1. EXUBERA [Suspect]
     Indication: TYPE 2 DIABETES MELLITUS
     Route: 055
     Dates: start: 20070831, end: 20071121
  2. METFORMIN HCL [Concomitant]
     Dosage: DAILY DOSE:2000MG
  3. GLYBURIDE [Concomitant]

REACTIONS (1)
  - LEFT VENTRICULAR DYSFUNCTION [None]
